FAERS Safety Report 7453550-8 (Version None)
Quarter: 2011Q2

REPORT INFORMATION
  Report Type: 
  Country: None (occurrence: None)
  Receive Date: 20110502
  Receipt Date: 20110216
  Transmission Date: 20111010
  Serious: No
  Sender: FDA-Public Use
  Company Number: US-ASTRAZENECA-2011SE08949

PATIENT
  Age: 61 Year
  Sex: Male
  Weight: 77.1 kg

DRUGS (3)
  1. NEXIUM [Suspect]
     Indication: DYSPEPSIA
     Route: 048
     Dates: start: 20070101
  2. NEXIUM [Suspect]
     Route: 048
  3. PREDNISONE [Concomitant]

REACTIONS (5)
  - HEADACHE [None]
  - HYPERTENSION [None]
  - FATIGUE [None]
  - ABDOMINAL PAIN [None]
  - GOITRE [None]
